FAERS Safety Report 5236126-2 (Version None)
Quarter: 2007Q1

REPORT INFORMATION
  Report Type: 
  Country: None (occurrence: None)
  Receive Date: 20070212
  Receipt Date: 20070203
  Transmission Date: 20070707
  Serious: Yes (Hospitalization)
  Sender: FDA-Public Use
  Company Number: ITWYE972820SEP06

PATIENT
  Sex: Male
  Weight: 61 kg

DRUGS (2)
  1. RAPAMUNE [Suspect]
     Indication: PROPHYLAXIS AGAINST TRANSPLANT REJECTION
     Dosage: TEST ARTICLE, 3 MG DAILY
     Route: 048
     Dates: start: 20050516, end: 20051116
  2. RAPAMUNE [Suspect]
     Dosage: COMMERCIAL RAPAMUNE, 3 MG DAILY
     Route: 048
     Dates: start: 20051117, end: 20051101

REACTIONS (1)
  - AZOOSPERMIA [None]
